FAERS Safety Report 18671045 (Version 2)
Quarter: 2020Q4

REPORT INFORMATION
  Report Type: Spontaneous
  Country: US (occurrence: US)
  Receive Date: 20201228
  Receipt Date: 20201228
  Transmission Date: 20210114
  Serious: Yes (Death, Hospitalization, Other)
  Sender: FDA-Public Use
  Company Number: US-CELGENEUS-USA-20201207671

PATIENT
  Age: 75 Year
  Sex: Female

DRUGS (2)
  1. UNSPECIFIED MONOCLONAL AB THERAPY [Concomitant]
     Indication: PRODUCT USED FOR UNKNOWN INDICATION
     Route: 065
  2. REVLIMID [Suspect]
     Active Substance: LENALIDOMIDE
     Indication: PLASMA CELL MYELOMA
     Dosage: 15 MILLIGRAM
     Route: 048
     Dates: start: 20170526, end: 20201121

REACTIONS (5)
  - Atrial fibrillation [Unknown]
  - Enterovesical fistula [Unknown]
  - Sepsis [Unknown]
  - COVID-19 pneumonia [Fatal]
  - Pneumomediastinum [Unknown]

NARRATIVE: CASE EVENT DATE: 202011
